FAERS Safety Report 5050863-4 (Version None)
Quarter: 2006Q3

REPORT INFORMATION
  Report Type: 
  Country: None (occurrence: None)
  Receive Date: 20060710
  Receipt Date: 20060626
  Transmission Date: 20061208
  Serious: Yes (Hospitalization)
  Sender: FDA-Public Use
  Company Number: 2006083178

PATIENT
  Age: 81 Year
  Sex: Female

DRUGS (15)
  1. TAHOR (ATORVASTATIN) [Suspect]
  2. PANTOPRAZOLE SODIUM [Suspect]
  3. PLAVIX [Suspect]
     Dosage: 75 MG, ORAL
     Route: 048
     Dates: start: 20060506, end: 20060510
  4. OFLOXACIN [Suspect]
     Dates: start: 20060427, end: 20060508
  5. MIRTAZAPINE [Suspect]
     Dosage: 15 MG, ORAL
     Route: 048
     Dates: start: 20060323, end: 20060510
  6. COUMADIN [Suspect]
     Dates: start: 20060402, end: 20060504
  7. LASIX [Concomitant]
  8. INDAPAMIDE [Concomitant]
  9. CITALOPRAM HYDROBROMIDE [Concomitant]
  10. RAMIPRIL [Concomitant]
  11. DIGOXIN [Concomitant]
  12. POTASSIUM CHLORIDE [Concomitant]
  13. ACETAMINOPHEN [Concomitant]
  14. CALCIPARINE [Concomitant]
  15. LOVENOX [Concomitant]

REACTIONS (2)
  - AGRANULOCYTOSIS [None]
  - ANAEMIA [None]
